FAERS Safety Report 9267276 (Version 1)
Quarter: 2013Q2

REPORT INFORMATION
  Report Type: Report from Study
  Country: US (occurrence: US)
  Receive Date: 20130502
  Receipt Date: 20130502
  Transmission Date: 20140414
  Serious: Yes (Other)
  Sender: FDA-Public Use
  Company Number: PHEH2013US009562

PATIENT
  Age: 27 Year
  Sex: Male

DRUGS (3)
  1. TASIGNA [Suspect]
     Indication: CHRONIC MYELOID LEUKAEMIA
     Dosage: 300 MG, BID
     Route: 048
     Dates: start: 201008, end: 201304
  2. APAP [Concomitant]
  3. HYDROCODONE [Concomitant]

REACTIONS (3)
  - Mood altered [Unknown]
  - Depressed mood [Unknown]
  - Rash [Unknown]
